FAERS Safety Report 18214181 (Version 7)
Quarter: 2021Q1

REPORT INFORMATION
  Report Type: Report from Study
  Country: JP (occurrence: JP)
  Receive Date: 20200831
  Receipt Date: 20210224
  Transmission Date: 20210419
  Serious: Yes (Hospitalization, Other)
  Sender: FDA-Public Use
  Company Number: JP-PFIZER INC-2019-05700

PATIENT
  Age: 53 Year
  Sex: Female
  Weight: 64 kg

DRUGS (9)
  1. BRAFTOVI [Suspect]
     Active Substance: ENCORAFENIB
     Dosage: 300 MG, DAILY
     Route: 048
     Dates: start: 20190531, end: 20200209
  2. MEKTOVI [Suspect]
     Active Substance: BINIMETINIB
     Dosage: 60 MG, DAILY
     Route: 048
     Dates: start: 20190531, end: 20200209
  3. MEKTOVI [Suspect]
     Active Substance: BINIMETINIB
     Indication: MALIGNANT MELANOMA
     Dosage: 90 MG, DAILY
     Route: 048
     Dates: start: 20190403, end: 20190513
  4. ALLELOCK [Concomitant]
     Active Substance: OLOPATADINE HYDROCHLORIDE
     Indication: URTICARIA CHRONIC
     Dosage: UNK
     Route: 065
  5. MEKTOVI [Suspect]
     Active Substance: BINIMETINIB
     Dosage: 60 MG, 1X/DAY
     Route: 048
     Dates: start: 20200406, end: 20200930
  6. BRAFTOVI [Suspect]
     Active Substance: ENCORAFENIB
     Indication: MALIGNANT MELANOMA
     Dosage: 450 MG, DAILY
     Route: 048
     Dates: start: 20190403, end: 20190513
  7. MEKTOVI [Suspect]
     Active Substance: BINIMETINIB
     Dosage: 30 MG, 2X/DAY
     Route: 048
     Dates: start: 20201106
  8. BRAFTOVI [Suspect]
     Active Substance: ENCORAFENIB
     Dosage: 300 MG, DAILY
     Route: 048
     Dates: start: 20200406, end: 20200930
  9. BRAFTOVI [Suspect]
     Active Substance: ENCORAFENIB
     Dosage: 200 MG, 1X/DAY
     Route: 048
     Dates: start: 20201106

REACTIONS (6)
  - Decreased appetite [Recovered/Resolved]
  - C-reactive protein increased [Recovered/Resolved]
  - Uveitis [Recovered/Resolved]
  - Pyrexia [Recovered/Resolved]
  - Hepatic function abnormal [Recovered/Resolved]
  - Urticaria [Recovering/Resolving]

NARRATIVE: CASE EVENT DATE: 20190513
